FAERS Safety Report 7774772-2 (Version None)
Quarter: 2011Q3

REPORT INFORMATION
  Report Type: 
  Country: None (occurrence: None)
  Receive Date: 20110923
  Receipt Date: 20110914
  Transmission Date: 20111222
  Serious: Yes (Hospitalization)
  Sender: FDA-Public Use
  Company Number: US-ACTELION-A-NJ2011-53448

PATIENT

DRUGS (15)
  1. METOPROLOL SUCCINATE [Concomitant]
  2. LASIX [Concomitant]
  3. DIOVAN [Concomitant]
  4. COUMADIN [Concomitant]
  5. TRACLEER [Suspect]
     Indication: PULMONARY ARTERIAL HYPERTENSION
     Dosage: UNK N, UNK
     Route: 048
     Dates: start: 20061003
  6. MULTI-VITAMIN [Concomitant]
  7. CRESTOR [Concomitant]
  8. DUONEB [Concomitant]
  9. PRADAXA [Concomitant]
  10. FLUTICASONE PROPIONATE [Concomitant]
  11. INSULIN [Concomitant]
  12. SPIRIVA [Concomitant]
  13. CALCIUM CHANNEL BLOCKERS [Concomitant]
  14. OMEPRAZOLE [Concomitant]
  15. ADVAIR DISKUS 100/50 [Concomitant]

REACTIONS (5)
  - CARDIAC FAILURE CONGESTIVE [None]
  - PULMONARY ARTERIAL HYPERTENSION [None]
  - COUGH [None]
  - DYSPNOEA [None]
  - OEDEMA PERIPHERAL [None]
